FAERS Safety Report 9242608 (Version 5)
Quarter: 2013Q4

REPORT INFORMATION
  Report Type: Spontaneous
  Country: US (occurrence: US)
  Receive Date: 20130419
  Receipt Date: 20131212
  Transmission Date: 20140711
  Serious: Yes (Hospitalization)
  Sender: FDA-Public Use
  Company Number: US-GLAXOSMITHKLINE-A1019755A

PATIENT
  Age: 54 Year
  Sex: Male

DRUGS (8)
  1. FLOLAN [Suspect]
     Indication: PULMONARY ARTERIAL HYPERTENSION
     Dosage: 18.5NGKM CONTINUOUS
     Route: 042
     Dates: start: 20120209
  2. NARCOTICS [Suspect]
     Indication: PRODUCT USED FOR UNKNOWN INDICATION
     Route: 065
  3. SILDENAFIL [Concomitant]
     Dosage: 100MG THREE TIMES PER DAY
  4. BOSENTAN [Concomitant]
  5. REVATIO [Concomitant]
  6. COUMADIN [Concomitant]
  7. TRACLEER [Concomitant]
  8. TRACLEER [Concomitant]
     Dosage: 125MG TWICE PER DAY

REACTIONS (10)
  - Investigation [Not Recovered/Not Resolved]
  - Catheter management [Recovered/Resolved]
  - Central venous catheterisation [Recovered/Resolved]
  - Device breakage [Recovered/Resolved]
  - Migraine [Unknown]
  - Headache [Unknown]
  - Medical device complication [Recovered/Resolved]
  - Infusion site haemorrhage [Unknown]
  - Infusion site pain [Unknown]
  - Disturbance in attention [Unknown]
